FAERS Safety Report 16133146 (Version 1)
Quarter: 2019Q1

REPORT INFORMATION
  Report Type: Report from Study
  Country: PK (occurrence: PK)
  Receive Date: 20190329
  Receipt Date: 20190329
  Transmission Date: 20190418
  Serious: Yes (Death)
  Sender: FDA-Public Use
  Company Number: PHHY2019PK070482

PATIENT
  Sex: Female
  Weight: 70 kg

DRUGS (1)
  1. GLIVEC [Suspect]
     Active Substance: IMATINIB MESYLATE
     Indication: CHRONIC MYELOID LEUKAEMIA
     Dosage: 4 DF, QD
     Route: 048
     Dates: start: 20131112

REACTIONS (4)
  - Pulmonary tuberculosis [Fatal]
  - Acute kidney injury [Fatal]
  - Malignant neoplasm progression [Fatal]
  - Chronic myeloid leukaemia [Fatal]
